FAERS Safety Report 4502552-X (Version None)
Quarter: 2004Q4

REPORT INFORMATION
  Report Type: 
  Country: None (occurrence: None)
  Receive Date: 20041112
  Receipt Date: 20041102
  Transmission Date: 20050328
  Serious: Yes (Hospitalization)
  Sender: FDA-Public Use
  Company Number: HQWYE208703NOV04

PATIENT
  Age: 37 Year
  Sex: Female

DRUGS (10)
  1. RAPAMUNE [Suspect]
     Indication: PROPHYLAXIS AGAINST TRANSPLANT REJECTION
     Dosage: 3 MG 1X PER 1 DAY ORAL
     Route: 048
     Dates: start: 20021018
  2. RANITIDINE [Concomitant]
  3. CO-TRIMAZOLE ^DAKOTA PHARM^ (SULFAMETHOXAZOLE/TRIMETHOPRIM) [Concomitant]
  4. ACEBUTOLOL [Concomitant]
  5. PRAZOSIN GITS [Concomitant]
  6. VERAPAMIL [Concomitant]
  7. PERINDOPRIL (PERINDOPRIL) [Concomitant]
  8. SIMVASTATIN [Concomitant]
  9. AZATHIOPRINE [Concomitant]
  10. PREDNISONE [Concomitant]

REACTIONS (6)
  - BLOOD CHOLESTEROL INCREASED [None]
  - BLOOD LACTATE DEHYDROGENASE INCREASED [None]
  - BLOOD TRIGLYCERIDES INCREASED [None]
  - KIDNEY TRANSPLANT REJECTION [None]
  - LOW DENSITY LIPOPROTEIN INCREASED [None]
  - NEPHROPATHY [None]
